FAERS Safety Report 5725832-9 (Version None)
Quarter: 2008Q2

REPORT INFORMATION
  Report Type: 
  Country: None (occurrence: None)
  Receive Date: 20080429
  Receipt Date: 20080414
  Transmission Date: 20081010
  Serious: Yes (Other)
  Sender: FDA-Public Use
  Company Number: 8031667

PATIENT
  Age: 43 Year
  Sex: Male
  Weight: 122.5 kg

DRUGS (31)
  1. LORTAB [Suspect]
     Dates: start: 20030728, end: 20041221
  2. ACTIQ [Suspect]
     Indication: BACK PAIN
     Dosage: 1600 MCG PRN BUC
     Route: 002
     Dates: start: 20050219, end: 20050510
  3. ACTIQ [Suspect]
     Indication: PAIN IN EXTREMITY
     Dosage: 1600 MCG PRN BUC
     Route: 002
     Dates: start: 20050219, end: 20050510
  4. ACTIQ [Suspect]
     Indication: BACK PAIN
     Dosage: 1200 MCG 3 /D PO
     Route: 048
     Dates: start: 20050511, end: 20050609
  5. ACTIQ [Suspect]
     Indication: PAIN IN EXTREMITY
     Dosage: 1200 MCG 3 /D PO
     Route: 048
     Dates: start: 20050511, end: 20050609
  6. ACTIQ [Suspect]
     Indication: BACK PAIN
     Dosage: 1600 MCG /D/ BUC
     Route: 002
     Dates: start: 20050511, end: 20050609
  7. ACTIQ [Suspect]
     Indication: PAIN IN EXTREMITY
     Dosage: 1600 MCG /D/ BUC
     Route: 002
     Dates: start: 20050511, end: 20050609
  8. ACTIQ [Suspect]
     Indication: BACK PAIN
     Dosage: 800 MG PO
     Route: 048
     Dates: start: 20050610
  9. ACTIQ [Suspect]
     Indication: PAIN IN EXTREMITY
     Dosage: 800 MG PO
     Route: 048
     Dates: start: 20050610
  10. OXYCONTIN [Suspect]
     Indication: BACK PAIN
     Dates: start: 20030708
  11. OXYCONTIN [Suspect]
     Indication: PAIN IN EXTREMITY
     Dates: start: 20030708
  12. OXYCONTIN [Suspect]
     Indication: BACK PAIN
     Dosage: 40 MG 3/D
     Dates: end: 20050218
  13. OXYCONTIN [Suspect]
     Indication: PAIN IN EXTREMITY
     Dosage: 40 MG 3/D
     Dates: end: 20050218
  14. OXYCONTIN [Suspect]
     Indication: BACK PAIN
     Dosage: 80 MG 2/D
     Dates: start: 20050219, end: 20050303
  15. OXYCONTIN [Suspect]
     Indication: PAIN IN EXTREMITY
     Dosage: 80 MG 2/D
     Dates: start: 20050219, end: 20050303
  16. OXYCONTIN [Suspect]
     Indication: BACK PAIN
     Dosage: 40 MG 2/D
     Dates: start: 20050304, end: 20050501
  17. OXYCONTIN [Suspect]
     Indication: PAIN IN EXTREMITY
     Dosage: 40 MG 2/D
     Dates: start: 20050304, end: 20050501
  18. OXYCONTIN [Suspect]
     Indication: BACK PAIN
     Dosage: 40 MG PRN
     Dates: start: 20050501
  19. OXYCONTIN [Suspect]
     Indication: PAIN IN EXTREMITY
     Dosage: 40 MG PRN
     Dates: start: 20050501
  20. OXYCONTIN [Suspect]
     Indication: BACK PAIN
     Dosage: 40 MG 3/D
     Dates: end: 20060210
  21. OXYCONTIN [Suspect]
     Indication: PAIN IN EXTREMITY
     Dosage: 40 MG 3/D
     Dates: end: 20060210
  22. OXYCONTIN [Suspect]
     Indication: BACK PAIN
     Dosage: 80 MG
     Dates: start: 20060211
  23. OXYCONTIN [Suspect]
     Indication: PAIN IN EXTREMITY
     Dosage: 80 MG
     Dates: start: 20060211
  24. DURAGESIC-100 [Suspect]
  25. NORCO [Suspect]
     Indication: PAIN
     Dates: start: 20041221
  26. NORCO [Suspect]
     Indication: PAIN
     Dosage: 6/D
     Dates: start: 20050510, end: 20050609
  27. NEURONTIN [Concomitant]
  28. TOPAMAX [Concomitant]
  29. COPAXONE [Concomitant]
  30. VALIUM [Concomitant]
  31. AMBIEN [Concomitant]

REACTIONS (9)
  - CONSTIPATION [None]
  - DENTAL CARIES [None]
  - DEPRESSION [None]
  - DRUG DEPENDENCE [None]
  - MULTIPLE SCLEROSIS [None]
  - POST LAMINECTOMY SYNDROME [None]
  - SUICIDAL IDEATION [None]
  - TOOTH LOSS [None]
  - VISION BLURRED [None]
